FAERS Safety Report 13774970 (Version 22)
Quarter: 2020Q3

REPORT INFORMATION
  Report Type: Report from Study
  Country: CA (occurrence: CA)
  Receive Date: 20170720
  Receipt Date: 20200909
  Transmission Date: 20201102
  Serious: Yes (Hospitalization, Other)
  Sender: FDA-Public Use
  Company Number: PHHY2017CA105523

PATIENT
  Age: 56 Year
  Sex: Female

DRUGS (9)
  1. SANDOSTATIN LAR DEPOT [Suspect]
     Active Substance: OCTREOTIDE ACETATE
     Dosage: 20 MG, UNK (EVERY 10 DAYS)
     Route: 030
  2. MORPHINE SULPHATE [Concomitant]
     Active Substance: MORPHINE SULFATE
     Indication: PRODUCT USED FOR UNKNOWN INDICATION
     Dosage: 5 MG, PRN
     Route: 065
  3. SANDOSTATIN LAR DEPOT [Suspect]
     Active Substance: OCTREOTIDE ACETATE
     Dosage: 20 MG, QW2
     Route: 030
  4. TRAMACET [Concomitant]
     Active Substance: ACETAMINOPHEN\TRAMADOL
     Indication: PRODUCT USED FOR UNKNOWN INDICATION
     Dosage: UNK
     Route: 065
  5. PARIET [Concomitant]
     Active Substance: RABEPRAZOLE SODIUM
     Indication: PRODUCT USED FOR UNKNOWN INDICATION
     Dosage: 20 MG, QD
     Route: 065
  6. MS CONTIN [Concomitant]
     Active Substance: MORPHINE SULFATE
     Indication: PRODUCT USED FOR UNKNOWN INDICATION
     Dosage: 15 MG, BID
     Route: 065
  7. SANDOSTATIN LAR DEPOT [Suspect]
     Active Substance: OCTREOTIDE ACETATE
     Dosage: 20 MG, UNK (EVERY 10 DAYS)
     Route: 030
     Dates: start: 20140310
  8. SANDOSTATIN LAR DEPOT [Suspect]
     Active Substance: OCTREOTIDE ACETATE
     Indication: ACROMEGALY
     Dosage: 20 MG, UNK (EVERY 10 DAYS)
     Route: 030
     Dates: start: 20080604
  9. HYDROCHLOROTHIAZIDE. [Concomitant]
     Active Substance: HYDROCHLOROTHIAZIDE
     Indication: PRODUCT USED FOR UNKNOWN INDICATION
     Dosage: 25 MG, QD
     Route: 065

REACTIONS (33)
  - Urinary tract infection [Unknown]
  - Blood pressure decreased [Unknown]
  - Asthenia [Recovering/Resolving]
  - Haemorrhage [Unknown]
  - Haematoma [Unknown]
  - Contusion [Unknown]
  - Nasopharyngitis [Unknown]
  - Tooth abscess [Unknown]
  - Pain [Unknown]
  - Arthritis [Unknown]
  - Fatigue [Recovering/Resolving]
  - Peripheral swelling [Unknown]
  - Pallor [Recovering/Resolving]
  - Back pain [Unknown]
  - Tooth fracture [Unknown]
  - Mucous stools [Recovering/Resolving]
  - Pain in extremity [Unknown]
  - Dizziness [Unknown]
  - Nausea [Unknown]
  - Rectal haemorrhage [Recovering/Resolving]
  - Insulin-like growth factor decreased [Unknown]
  - Malaise [Recovering/Resolving]
  - Fall [Recovering/Resolving]
  - Arthralgia [Not Recovered/Not Resolved]
  - Inappropriate schedule of product administration [Unknown]
  - Colitis [Recovered/Resolved]
  - Post procedural complication [Unknown]
  - Feeling hot [Unknown]
  - Haematochezia [Recovering/Resolving]
  - Blood urine present [Unknown]
  - Muscle strain [Unknown]
  - Hyperhidrosis [Recovering/Resolving]
  - Body temperature increased [Unknown]

NARRATIVE: CASE EVENT DATE: 20080604
